FAERS Safety Report 9350169 (Version 1)
Quarter: 2013Q2

REPORT INFORMATION
  Report Type: Spontaneous
  Country: US (occurrence: US)
  Receive Date: 20130617
  Receipt Date: 20130617
  Transmission Date: 20140414
  Serious: No
  Sender: FDA-Public Use
  Company Number: US-B.I. PHARMACEUTICALS,INC./RIDGEFIELD-2013-BI-16427BP

PATIENT
  Sex: Male

DRUGS (1)
  1. FLOMAX CAPSULES [Suspect]
     Indication: NOCTURIA

REACTIONS (1)
  - Drug ineffective [Unknown]
